FAERS Safety Report 9328819 (Version 2)
Quarter: 2013Q4

REPORT INFORMATION
  Report Type: Spontaneous
  Country: GB (occurrence: GB)
  Receive Date: 20130604
  Receipt Date: 20131030
  Transmission Date: 20140711
  Serious: Yes (Life-Threatening)
  Sender: FDA-Public Use
  Company Number: GB-TEVA-408793ISR

PATIENT
  Age: 68 Year
  Sex: Male

DRUGS (8)
  1. WARFARIN [Suspect]
     Indication: PULMONARY EMBOLISM
     Dosage: LONG TERM
     Route: 048
  2. TARGRETIN [Interacting]
     Route: 048
     Dates: start: 20130401, end: 20130417
  3. TARGRETIN [Interacting]
     Dosage: 375 MILLIGRAM DAILY; DRUG RESTARTED AT 375MG ONCE DAILY
     Route: 048
  4. METHOXSALEN [Concomitant]
     Dosage: PSORALEN. LONG TERM
     Route: 048
  5. FENOFIBRATE [Concomitant]
     Dosage: LONG TERM
  6. METFORMIN [Concomitant]
     Dosage: LONG TERM
  7. LEVOTHYROXINE [Concomitant]
     Dosage: LONG TERM
  8. PHOTOTHERAPY PUVA [Concomitant]
     Dosage: PSORALEN ONCE WEEKLY

REACTIONS (7)
  - Coagulation test abnormal [Unknown]
  - Haematuria [Recovered/Resolved]
  - Haematemesis [Unknown]
  - Haemoptysis [Unknown]
  - International normalised ratio increased [Unknown]
  - Drug interaction [Unknown]
  - Abdominal pain [Unknown]
